FAERS Safety Report 23760535 (Version 1)
Quarter: 2024Q2

REPORT INFORMATION
  Report Type: Spontaneous
  Country: PT (occurrence: PT)
  Receive Date: 20240419
  Receipt Date: 20240419
  Transmission Date: 20240715
  Serious: Yes (Other)
  Sender: FDA-Public Use
  Company Number: PT-JUBILANT CADISTA PHARMACEUTICALS-2024PT000533

PATIENT
  Age: 66 Year
  Sex: Female

DRUGS (2)
  1. QUETIAPINE FUMARATE [Suspect]
     Active Substance: QUETIAPINE FUMARATE
     Indication: Major depression
     Dosage: 600 MG
     Route: 065
  2. ESCITALOPRAM [Suspect]
     Active Substance: ESCITALOPRAM OXALATE
     Indication: Major depression
     Dosage: 20 MG
     Route: 065

REACTIONS (12)
  - Somnolence [Recovering/Resolving]
  - Withdrawal catatonia [Recovering/Resolving]
  - Decreased activity [Recovering/Resolving]
  - Hypokinesia [Recovering/Resolving]
  - Speech disorder [Recovering/Resolving]
  - Negativism [Recovering/Resolving]
  - Muscle rigidity [Recovering/Resolving]
  - Waxy flexibility [Recovering/Resolving]
  - Hypophagia [Recovering/Resolving]
  - Hypertension [Recovering/Resolving]
  - Tachycardia [Recovering/Resolving]
  - Oedema peripheral [Recovering/Resolving]
